FAERS Safety Report 15753481 (Version 2)
Quarter: 2018Q4

REPORT INFORMATION
  Report Type: Spontaneous
  Country: US (occurrence: US)
  Receive Date: 20181222
  Receipt Date: 20181222
  Transmission Date: 20190205
  Serious: No
  Sender: FDA-Public Use
  Company Number: US-MALLINCKRODT-T201802889

PATIENT
  Age: 47 Year
  Sex: Female

DRUGS (6)
  1. GABAPENTIN. [Concomitant]
     Active Substance: GABAPENTIN
     Indication: PRODUCT USED FOR UNKNOWN INDICATION
     Dosage: 300 MG, QD
     Route: 065
  2. VENLAFAXINE [Concomitant]
     Active Substance: VENLAFAXINE HYDROCHLORIDE
     Indication: PRODUCT USED FOR UNKNOWN INDICATION
     Dosage: 150 MG, QD
     Route: 065
  3. OXYCODONE [Concomitant]
     Active Substance: OXYCODONE
     Indication: PAIN
     Dosage: 5 MG, PRN (EVERY 4 HOURS)
     Route: 065
  4. XARELTO [Concomitant]
     Active Substance: RIVAROXABAN
     Indication: ANTICOAGULANT THERAPY
     Dosage: 10 MG, QD
     Route: 065
  5. FENTANYL TRANSDERMAL SYSTEM [Suspect]
     Active Substance: FENTANYL
     Indication: MEDIASTINITIS
  6. FENTANYL TRANSDERMAL SYSTEM [Suspect]
     Active Substance: FENTANYL
     Indication: SUPERIOR VENA CAVA SYNDROME
     Dosage: 50 MCG 1 PATCH EVERY 72 HOURS
     Route: 062
     Dates: start: 20180116

REACTIONS (7)
  - Blood chloride increased [Unknown]
  - Disorganised speech [Recovered/Resolved]
  - Blood alkaline phosphatase increased [Unknown]
  - Feeling drunk [Recovered/Resolved]
  - Incorrect dose administered [Unknown]
  - Lethargy [Recovered/Resolved]
  - Product quality issue [Unknown]

NARRATIVE: CASE EVENT DATE: 20180702
